FAERS Safety Report 7053565 (Version 3)
Quarter: 2016Q1

REPORT INFORMATION
  Report Type: Spontaneous
  Country: US (occurrence: US)
  Receive Date: 20090717
  Receipt Date: 20160106
  Transmission Date: 20160526
  Serious: Yes (Other)
  Sender: FDA-Public Use
  Company Number: US-BAYER-200925693NA

PATIENT
  Age: 47 Year
  Sex: Female
  Weight: 110.91 kg

DRUGS (1)
  1. MIRENA [Suspect]
     Active Substance: LEVONORGESTREL
     Indication: CONTRACEPTION
     Dosage: 20 MCG/24HR, CONT
     Route: 015
     Dates: start: 20090612, end: 20090702

REACTIONS (9)
  - Renal failure [None]
  - Device dislocation [None]
  - Urinary tract infection [Recovered/Resolved]
  - Vaginal haemorrhage [Recovered/Resolved]
  - Anaemia [Recovered/Resolved]
  - Asthma [None]
  - Blood pressure increased [None]
  - Blood cholesterol increased [None]
  - Pain [Recovered/Resolved]
